FAERS Safety Report 4738390-2 (Version None)
Quarter: 2005Q3

REPORT INFORMATION
  Report Type: 
  Country: None (occurrence: None)
  Receive Date: 20050809
  Receipt Date: 20050808
  Transmission Date: 20060218
  Serious: Yes (Other)
  Sender: FDA-Public Use
  Company Number: US-GLAXOSMITHKLINE-A0569218A

PATIENT
  Age: 21 Year
  Sex: Female

DRUGS (1)
  1. PAXIL [Suspect]
     Indication: MENTAL DISORDER
     Dosage: 50MG PER DAY
     Route: 048

REACTIONS (8)
  - ABASIA [None]
  - APHASIA [None]
  - BELLIGERENCE [None]
  - DIZZINESS [None]
  - ENURESIS [None]
  - LOSS OF CONSCIOUSNESS [None]
  - NAUSEA [None]
  - VOMITING [None]
